FAERS Safety Report 7714968-9 (Version None)
Quarter: 2011Q3

REPORT INFORMATION
  Report Type: 
  Country: None (occurrence: None)
  Receive Date: 20110829
  Receipt Date: 20110708
  Transmission Date: 20111222
  Serious: No
  Sender: FDA-Public Use
  Company Number: US-ASTRAZENECA-2011SE40966

PATIENT
  Age: 51 Year
  Sex: Male

DRUGS (2)
  1. VIMOVO [Suspect]
     Indication: ARTHRITIS
     Route: 048
     Dates: start: 20110706
  2. VIMOVO [Suspect]
     Route: 048
     Dates: start: 20110707

REACTIONS (2)
  - INSOMNIA [None]
  - DISTURBANCE IN ATTENTION [None]
